FAERS Safety Report 8148528-5 (Version None)
Quarter: 2012Q1

REPORT INFORMATION
  Report Type: 
  Country: None (occurrence: None)
  Receive Date: 20120218
  Receipt Date: 20120118
  Transmission Date: 20120608
  Serious: No
  Sender: FDA-Public Use
  Company Number: US-ALLERGAN-1108109US

PATIENT
  Age: 69 Year
  Sex: Female
  Weight: 156 kg

DRUGS (6)
  1. FLEXERIL [Concomitant]
  2. PERCOCET [Concomitant]
  3. FIORINAL                           /00090401/ [Concomitant]
  4. MORPHINE [Concomitant]
  5. BOTULINUM TOXIN TYPE A [Suspect]
     Indication: HEADACHE
     Dosage: 155 UNITS, SINGLE
     Route: 030
     Dates: start: 20110118
  6. PREDNISONE [Concomitant]
     Indication: PRODUCT USED FOR UNKNOWN INDICATION

REACTIONS (2)
  - SWELLING FACE [None]
  - LOCAL SWELLING [None]
